FAERS Safety Report 4883327-9 (Version None)
Quarter: 2006Q1

REPORT INFORMATION
  Report Type: 
  Country: None (occurrence: None)
  Receive Date: 20060118
  Receipt Date: 20060112
  Transmission Date: 20060701
  Serious: Yes (Death, Life-Threatening, Hospitalization)
  Sender: FDA-Public Use
  Company Number: D01200300969

PATIENT
  Age: 72 Year
  Sex: Male

DRUGS (3)
  1. FONDAPARINUX SODIUM [Suspect]
     Dosage: 2.5MG PER DAY
     Route: 058
     Dates: start: 20030717, end: 20030719
  2. CLOPIDOGREL [Concomitant]
  3. ASPIRIN [Concomitant]

REACTIONS (2)
  - HAEMORRHAGE INTRACRANIAL [None]
  - SEPSIS SYNDROME [None]
